FAERS Safety Report 8000910-2 (Version None)
Quarter: 2011Q4

REPORT INFORMATION
  Report Type: 
  Country: None (occurrence: None)
  Receive Date: 20111214
  Receipt Date: 20111201
  Transmission Date: 20120403
  Serious: Yes (Hospitalization)
  Sender: FDA-Public Use
  Company Number: TCI2011A06413

PATIENT
  Age: 60 Year
  Sex: Male

DRUGS (14)
  1. CARVEDILOL [Suspect]
     Dosage: PER ORAL
     Route: 048
     Dates: end: 20111110
  2. PURSENNID (SENNOSIDE A+B CALCIUM) [Suspect]
     Dosage: (12 MG) PER ORAL
     Route: 048
     Dates: end: 20111110
  3. WARFARIN SODIUM [Suspect]
     Dosage: (3 MG) PER ORAL
     Route: 048
     Dates: end: 20111110
  4. LANSOPRAZOLE [Suspect]
     Dosage: 15 MG (15 MG,1 IN 1 D) PER ORAL
     Route: 048
     Dates: start: 20111005, end: 20111110
  5. ENALAPRIL MALEATE [Suspect]
     Dosage: (5 MG) PER ORAL ; PER ORAL
     Route: 048
     Dates: end: 20111110
  6. ENALAPRIL MALEATE [Suspect]
     Dosage: (5 MG) PER ORAL ; PER ORAL
     Route: 048
     Dates: start: 20111116, end: 20111124
  7. LIVALO [Suspect]
     Dosage: (2 MG ) PER ORAL
     Route: 048
     Dates: end: 20111110
  8. CELOOP (TEPRENONE) [Suspect]
     Dosage: (50 MG) PER ORAL
     Route: 048
     Dates: end: 20111110
  9. PLAVIX [Suspect]
     Dosage: (75 MG) PER ORAL
     Route: 048
     Dates: end: 20111110
  10. MAGNESIUM OXIDE) [Suspect]
     Dosage: (2 GM) PER ORAL
     Route: 048
     Dates: end: 20111110
  11. ASPIRIN [Suspect]
     Dosage: (100 MG) PER ORAL ; PER ORAL
     Route: 048
     Dates: start: 20111116, end: 20111124
  12. ASPIRIN [Suspect]
     Dosage: (100 MG) PER ORAL ; PER ORAL
     Route: 048
     Dates: end: 20111110
  13. LASIX [Suspect]
     Dates: end: 20111110
  14. LASIX [Suspect]
     Dates: start: 20111116, end: 20111124

REACTIONS (3)
  - ORAL CANDIDIASIS [None]
  - GRANULOCYTOPENIA [None]
  - SEPSIS [None]
